FAERS Safety Report 7783539-0 (Version None)
Quarter: 2011Q3

REPORT INFORMATION
  Report Type: 
  Country: None (occurrence: None)
  Receive Date: 20110928
  Receipt Date: 20110928
  Transmission Date: 20111222
  Serious: Yes (Other)
  Sender: FDA-Public Use
  Company Number: None

PATIENT
  Age: 57 Year
  Sex: Female
  Weight: 77.11 kg

DRUGS (1)
  1. CLINDAMYCIN [Suspect]
     Indication: ENDODONTIC PROCEDURE
     Dosage: 1
     Dates: start: 20110803, end: 20110816

REACTIONS (3)
  - MUCOUS STOOLS [None]
  - COLITIS [None]
  - DIARRHOEA HAEMORRHAGIC [None]
